FAERS Safety Report 6835886-4 (Version None)
Quarter: 2010Q3

REPORT INFORMATION
  Report Type: 
  Country: None (occurrence: None)
  Receive Date: 20100712
  Receipt Date: 20100712
  Transmission Date: 20110219
  Serious: Yes (Death, Life-Threatening, Hospitalization, Disabling, Other)
  Sender: FDA-Public Use
  Company Number: None

PATIENT
  Age: 62 Year
  Sex: Male
  Weight: 68.0396 kg

DRUGS (2)
  1. QUALAQUIN [Suspect]
     Indication: MUSCLE SPASMS
     Dosage: ONE TABLET AT BEDTIME
     Dates: start: 20080901, end: 20100320
  2. QUALAQUIN [Suspect]
     Indication: MUSCLE SPASMS
     Dosage: ONE TABLET AT BEDTIME
     Dates: start: 20080901, end: 20100320

REACTIONS (2)
  - CARDIOMYOPATHY [None]
  - RENAL FAILURE [None]
